FAERS Safety Report 12435851 (Version 2)
Quarter: 2016Q2

REPORT INFORMATION
  Report Type: Spontaneous
  Country: US (occurrence: US)
  Receive Date: 20160603
  Receipt Date: 20160615
  Transmission Date: 20160815
  Serious: Yes (Life-Threatening, Hospitalization, Other)
  Sender: FDA-Public Use
  Company Number: US-JNJFOC-20160529672

PATIENT
  Age: 28 Year
  Sex: Female

DRUGS (4)
  1. GABAPENTIN. [Concomitant]
     Active Substance: GABAPENTIN
     Route: 065
  2. LOPERAMIDE [Suspect]
     Active Substance: LOPERAMIDE
     Route: 048
  3. CIMETIDINE [Suspect]
     Active Substance: CIMETIDINE
     Indication: DRUG DEPENDENCE
     Dosage: 2000MG IN THE FORM OF 200MG TABLETS
     Route: 065
  4. LOPERAMIDE [Suspect]
     Active Substance: LOPERAMIDE
     Indication: DRUG DEPENDENCE
     Dosage: 400-600 MG OF LOPERAMIDE (IN THE FORM OF 2 MG OF 100 TABLETS A DAY
     Route: 048

REACTIONS (3)
  - Ventricular arrhythmia [Recovered/Resolved]
  - Overdose [Recovered/Resolved]
  - Drug abuse [Recovered/Resolved]
